FAERS Safety Report 5167844-2 (Version None)
Quarter: 2006Q4

REPORT INFORMATION
  Report Type: 
  Country: None (occurrence: None)
  Receive Date: 20061208
  Receipt Date: 20061127
  Transmission Date: 20070319
  Serious: Yes (Hospitalization)
  Sender: FDA-Public Use
  Company Number: PHNU2006DE03980

PATIENT
  Age: 80 Year
  Sex: Female

DRUGS (11)
  1. TRILEPTAL [Suspect]
     Indication: EPILEPSY
     Dosage: 12.5 ML/D (2.5-0-10)
     Route: 048
     Dates: start: 20061122, end: 20061123
  2. TRILEPTAL [Suspect]
     Dosage: 10 ML/D (2.5-0-7.5)
     Route: 048
     Dates: start: 20061124, end: 20061125
  3. TRILEPTAL [Suspect]
     Dosage: 7.5 ML/D (2.5-0-5)
     Route: 048
     Dates: start: 20061126, end: 20061126
  4. TRILEPTAL [Suspect]
     Dosage: 5.5 ML/D
     Route: 048
     Dates: start: 20061127
  5. HYDROCORTISONE [Concomitant]
     Dosage: 1.5 DF (0-1-0.5)
  6. TRILEPTAL [Suspect]
     Dosage: 750 MG/D (0.5-0-2 DF)
     Route: 048
     Dates: start: 20060101
  7. ASTONIN [Concomitant]
     Dosage: 2 DF (1-1-0)
  8. FAMOTIDINE [Concomitant]
     Dosage: 1 DF/D (0-0-1)
  9. AMANTADINE HCL [Concomitant]
     Dosage: 1.5 DF/D (1-0.5-0)
  10. LEVOTHYROXINE SODIUM [Concomitant]
     Dosage: 1 DF/D (1-0-0)
  11. BACLOFEN [Concomitant]
     Dosage: 3 DF/D (1-1-1)

REACTIONS (2)
  - DEPRESSED LEVEL OF CONSCIOUSNESS [None]
  - SOMNOLENCE [None]
